FAERS Safety Report 15835733 (Version 5)
Quarter: 2019Q3

REPORT INFORMATION
  Report Type: Spontaneous
  Country: US (occurrence: US)
  Receive Date: 20190117
  Receipt Date: 20190704
  Transmission Date: 20191004
  Serious: Yes (Hospitalization, Other)
  Sender: FDA-Public Use
  Company Number: US-PHARMING-PHAUS2019000033

PATIENT

DRUGS (25)
  1. VITAMIN B12 [Concomitant]
     Active Substance: CYANOCOBALAMIN
  2. LASIX [Concomitant]
     Active Substance: FUROSEMIDE
  3. PERCOCET [Concomitant]
     Active Substance: ACETAMINOPHEN\OXYCODONE HYDROCHLORIDE
  4. RUCONEST [Suspect]
     Active Substance: HUMAN C1-ESTERASE INHIBITOR
     Indication: HEREDITARY ANGIOEDEMA
     Dosage: 4200 IU, AS NEEDED
     Route: 042
     Dates: start: 20171102
  5. ZOLPIDEM [Concomitant]
     Active Substance: ZOLPIDEM TARTRATE
  6. IBUPROFEN. [Concomitant]
     Active Substance: IBUPROFEN
  7. MULTIVITAMINS [Concomitant]
     Active Substance: VITAMINS
  8. POTASSIUM CHLORIDE. [Concomitant]
     Active Substance: POTASSIUM CHLORIDE
  9. BACLOFEN. [Concomitant]
     Active Substance: BACLOFEN
  10. CALCIUM [Concomitant]
     Active Substance: CALCIUM
  11. NAPROXEN. [Concomitant]
     Active Substance: NAPROXEN
  12. RUCONEST [Suspect]
     Active Substance: HUMAN C1-ESTERASE INHIBITOR
     Dosage: 4200 IU, PRN
     Route: 042
     Dates: start: 20171101
  13. EPINEPHRINE. [Concomitant]
     Active Substance: EPINEPHRINE
  14. METHOTREXATE. [Concomitant]
     Active Substance: METHOTREXATE
  15. PRAVASTATIN. [Concomitant]
     Active Substance: PRAVASTATIN
  16. TYLENOL [Concomitant]
     Active Substance: ACETAMINOPHEN
  17. POTASSIUM [Concomitant]
     Active Substance: POTASSIUM
  18. FOLIC ACID. [Concomitant]
     Active Substance: FOLIC ACID
  19. SYNTHROID [Concomitant]
     Active Substance: LEVOTHYROXINE SODIUM
  20. METOPROLOL. [Concomitant]
     Active Substance: METOPROLOL
  21. RANITIDINE. [Concomitant]
     Active Substance: RANITIDINE
  22. CALCIUM + VITAMIN D3 [Concomitant]
     Active Substance: CALCIUM CARBONATE\CHOLECALCIFEROL
  23. ASPIRIN. [Concomitant]
     Active Substance: ASPIRIN
  24. BENADRYL [Concomitant]
     Active Substance: DIPHENHYDRAMINE HYDROCHLORIDE
  25. GABAPENTIN. [Concomitant]
     Active Substance: GABAPENTIN

REACTIONS (4)
  - Therapeutic product effect incomplete [Unknown]
  - Tongue neoplasm malignant stage unspecified [Unknown]
  - Nausea [Unknown]
  - Vascular access site complication [Unknown]

NARRATIVE: CASE EVENT DATE: 2019
